FAERS Safety Report 25500212 (Version 1)
Quarter: 2025Q3

REPORT INFORMATION
  Report Type: Report from Study
  Country: US (occurrence: US)
  Receive Date: 20250701
  Receipt Date: 20250701
  Transmission Date: 20251021
  Serious: Yes (Hospitalization)
  Sender: AMGEN
  Company Number: US-AMGEN-USASL2025110713

PATIENT
  Age: 48 Year
  Sex: Male

DRUGS (3)
  1. KRYSTEXXA [Suspect]
     Active Substance: PEGLOTICASE
     Indication: Gouty tophus
     Dosage: UNK UNK, Q2WK
     Route: 065
     Dates: start: 20240903
  2. KRYSTEXXA [Suspect]
     Active Substance: PEGLOTICASE
     Dosage: UNK UNK, Q2WK
     Route: 065
     Dates: start: 2025, end: 2025
  3. PREDNISONE [Suspect]
     Active Substance: PREDNISONE
     Indication: Gout
     Dosage: UNK UNK, QD
     Route: 065
     Dates: start: 20250530

REACTIONS (2)
  - Cellulitis [Recovering/Resolving]
  - Gout [Not Recovered/Not Resolved]

NARRATIVE: CASE EVENT DATE: 20250101
